FAERS Safety Report 15133446 (Version 5)
Quarter: 2019Q2

REPORT INFORMATION
  Report Type: Spontaneous
  Country: US (occurrence: US)
  Receive Date: 20180712
  Receipt Date: 20190605
  Transmission Date: 20190711
  Serious: No
  Sender: FDA-Public Use
  Company Number: US-PFIZER INC-2018279816

PATIENT
  Age: 54 Year
  Sex: Male
  Weight: 98 kg

DRUGS (5)
  1. LYRICA [Suspect]
     Active Substance: PREGABALIN
     Indication: DYSTONIA
     Dosage: 100 MG, DAILY (2 CAPSULES AT NIGHT BEFORE BED)
     Route: 048
     Dates: start: 20180425
  2. LYRICA [Suspect]
     Active Substance: PREGABALIN
     Dosage: 50 MG, 2X/DAY
     Route: 048
  3. LYRICA [Suspect]
     Active Substance: PREGABALIN
     Indication: NECK PAIN
     Dosage: 1 DF, 3X/DAY (1 CAP IN AM AND 2 CAP AT NIGHT DURING HIS DAYS OFF FROM WORK)
     Route: 048
  4. LYRICA [Suspect]
     Active Substance: PREGABALIN
     Indication: NEURALGIA
     Dosage: 100 MG, DAILY
     Dates: start: 20180828
  5. LYRICA [Suspect]
     Active Substance: PREGABALIN
     Dosage: 25 MG, DAILY
     Dates: start: 20180828

REACTIONS (4)
  - Product use issue [Unknown]
  - Off label use [Unknown]
  - Somnolence [Unknown]
  - Cough [Unknown]

NARRATIVE: CASE EVENT DATE: 20180425
